FAERS Safety Report 9196199 (Version 2)
Quarter: 2013Q4

REPORT INFORMATION
  Report Type: Spontaneous
  Country: US (occurrence: US)
  Receive Date: 20130328
  Receipt Date: 20131125
  Transmission Date: 20140711
  Serious: Yes (Other)
  Sender: FDA-Public Use
  Company Number: US-BAYER-2013-038078

PATIENT
  Age: 22 Year
  Sex: Female

DRUGS (14)
  1. YAZ [Suspect]
     Dosage: UNK
  2. YASMIN [Suspect]
     Dosage: UNK
  3. OCELLA [Suspect]
     Dosage: UNK
  4. CLONAZEPAM [Concomitant]
     Dosage: 1 MG THREE TIMES A DAY AS NEEDED
     Dates: start: 20080308, end: 20080707
  5. PRILOSEC [Concomitant]
     Dosage: 20 MG, UNK
     Dates: start: 20080520, end: 20080616
  6. TAPAZOLE [Concomitant]
     Dosage: 10 MG, HS
     Dates: start: 20080602, end: 20080722
  7. AZITHROMYCIN [Concomitant]
     Dosage: 250 MG, UNK
     Dates: start: 20080603, end: 20080714
  8. FLEXERIL [Concomitant]
     Dosage: 10 MG, AS NEEDED  TWICE A DAY
     Dates: start: 20080606, end: 20080707
  9. TRAMADOL HYDROCHLORIDE [Concomitant]
     Dosage: 50 MG, UNK
     Dates: start: 20080609, end: 20080711
  10. SILVER SULFADIAZINE [Concomitant]
     Dosage: UNK
     Dates: start: 20080609
  11. CIPROFLOXACIN [Concomitant]
     Dosage: 500 MG, UNK
     Dates: start: 20080706
  12. PROTONIX [Concomitant]
     Dosage: 40 MG, DAILY
     Dates: start: 20080707
  13. REGLAN [Concomitant]
     Dosage: 10 MG, FOUR TIMES A DAY
     Dates: start: 20080707
  14. KLONOPIN [Concomitant]
     Dosage: 1 MG, TID AS NEEDED

REACTIONS (5)
  - Gallbladder injury [None]
  - Cholecystitis chronic [None]
  - Injury [None]
  - Pain [None]
  - Pain [None]
